FAERS Safety Report 5201543-3 (Version None)
Quarter: 2007Q1

REPORT INFORMATION
  Report Type: 
  Country: None (occurrence: None)
  Receive Date: 20070108
  Receipt Date: 20070103
  Transmission Date: 20070707
  Serious: Yes (Disabling, Other)
  Sender: FDA-Public Use
  Company Number: FR-PFIZER INC-2007000227

PATIENT
  Sex: Female

DRUGS (2)
  1. TAHOR [Suspect]
     Indication: HYPERCHOLESTEROLAEMIA
  2. TAHOR [Suspect]
     Indication: ARRHYTHMIA

REACTIONS (7)
  - BLOOD ALKALINE PHOSPHATASE INCREASED [None]
  - CHEST PAIN [None]
  - GAMMA-GLUTAMYLTRANSFERASE INCREASED [None]
  - LIVER TENDERNESS [None]
  - MYALGIA [None]
  - NAUSEA [None]
  - VISUAL DISTURBANCE [None]
